FAERS Safety Report 22212830 (Version 1)
Quarter: 2023Q2

REPORT INFORMATION
  Report Type: Report from Study
  Country: US (occurrence: US)
  Receive Date: 20230414
  Receipt Date: 20230414
  Transmission Date: 20230721
  Serious: Yes (Other)
  Sender: FDA-Public Use
  Company Number: US-ABBVIE-4317548

PATIENT
  Sex: Female

DRUGS (3)
  1. HUMIRA [Suspect]
     Active Substance: ADALIMUMAB
     Indication: Colitis ulcerative
     Dosage: FORM STRENGTH: 40 MG
     Route: 058
     Dates: start: 2018
  2. HUMIRA [Suspect]
     Active Substance: ADALIMUMAB
     Dosage: FORM STRENGTH: 40 MG
     Route: 058
     Dates: start: 20190101
  3. HUMIRA [Suspect]
     Active Substance: ADALIMUMAB
     Dosage: FORM STERNGTH- 80 MG
     Route: 058
     Dates: start: 2022

REACTIONS (8)
  - Suicidal ideation [Recovered/Resolved]
  - Mental disorder [Recovered/Resolved]
  - Self-consciousness [Not Recovered/Not Resolved]
  - Social problem [Not Recovered/Not Resolved]
  - Depression [Recovering/Resolving]
  - Skin discolouration [Not Recovered/Not Resolved]
  - Intentional self-injury [Recovered/Resolved]
  - Anxiety [Recovering/Resolving]

NARRATIVE: CASE EVENT DATE: 20180101
